FAERS Safety Report 14334092 (Version 4)
Quarter: 2019Q1

REPORT INFORMATION
  Report Type: Spontaneous
  Country: US (occurrence: US)
  Receive Date: 20171228
  Receipt Date: 20190301
  Transmission Date: 20190417
  Serious: Yes (Other)
  Sender: FDA-Public Use
  Company Number: PHEH2017US040276

PATIENT
  Age: 61 Year
  Sex: Male
  Weight: 71.67 kg

DRUGS (6)
  1. XANAX [Concomitant]
     Active Substance: ALPRAZOLAM
     Indication: PRODUCT USED FOR UNKNOWN INDICATION
     Dosage: UNK
     Route: 065
  2. HYDROXYZINE [Suspect]
     Active Substance: HYDROXYZINE HYDROCHLORIDE
     Indication: NERVOUS SYSTEM DISORDER
     Dosage: 50 MG, BID (50MG IN THE MORNING AND ONE BEFORE BEDTIME)
     Route: 048
     Dates: start: 20171011
  3. ALPRAZOLAM SANDOZ [Suspect]
     Active Substance: ALPRAZOLAM
     Indication: ANXIETY
     Dosage: 0.5 MG, QID
     Route: 048
     Dates: start: 20171125
  4. ALPRAZOLAM SANDOZ [Suspect]
     Active Substance: ALPRAZOLAM
     Dosage: UNK UNK, BID
     Route: 048
     Dates: start: 201801
  5. ALPRAZOLAM SANDOZ [Suspect]
     Active Substance: ALPRAZOLAM
     Indication: NERVOUS SYSTEM DISORDER
     Dosage: 0.5 MG, QID
     Route: 048
     Dates: start: 2015
  6. ALPRAZOLAM SANDOZ [Suspect]
     Active Substance: ALPRAZOLAM
     Dosage: 0.5 MG, TID
     Route: 048

REACTIONS (10)
  - Drug ineffective [Not Recovered/Not Resolved]
  - Hepatitis B [Not Recovered/Not Resolved]
  - Gait inability [Unknown]
  - Hepatitis C [Not Recovered/Not Resolved]
  - Paraesthesia [Unknown]
  - Inappropriate schedule of product administration [Not Recovered/Not Resolved]
  - Dysgeusia [Not Recovered/Not Resolved]
  - Gastrointestinal disorder [Unknown]
  - Product odour abnormal [Not Recovered/Not Resolved]
  - Wrong technique in product usage process [Unknown]

NARRATIVE: CASE EVENT DATE: 20171023
